FAERS Safety Report 10065270 (Version 4)
Quarter: 2014Q2

REPORT INFORMATION
  Report Type: Spontaneous
  Country: IT (occurrence: IT)
  Receive Date: 20140408
  Receipt Date: 20140424
  Transmission Date: 20141212
  Serious: Yes (Other)
  Sender: FDA-Public Use
  Company Number: IT-PFIZER INC-2014095035

PATIENT
  Age: 66 Year
  Sex: Female

DRUGS (10)
  1. TRIATEC [Suspect]
     Indication: HYPERTENSION
     Dosage: UNK
     Route: 048
  2. TOPAMAX [Interacting]
     Dosage: UNK
     Route: 065
  3. CYMBALTA [Interacting]
     Dosage: UNK
     Route: 048
     Dates: start: 2013
  4. CYMBALTA [Interacting]
     Dosage: 60 MG, 2X/DAY
     Route: 048
     Dates: start: 2013
  5. CYMBALTA [Interacting]
     Dosage: 60 MG, DAILY
     Route: 048
     Dates: start: 201309
  6. SEROQUEL [Interacting]
     Dosage: 125 MG, DAILY
     Route: 048
  7. SEROQUEL [Interacting]
     Dosage: UNK
     Route: 048
     Dates: start: 2013
  8. EBIXA [Interacting]
     Dosage: 20 MG, DAILY
     Route: 048
  9. EXELON [Interacting]
     Dosage: UNK
     Route: 065
  10. CARDIOASPIRIN [Interacting]
     Dosage: 100 MG, DAILY
     Route: 048

REACTIONS (18)
  - Convulsion [Unknown]
  - Psychomotor hyperactivity [Unknown]
  - Agnosia [Unknown]
  - Drug interaction [Unknown]
  - Psychotic behaviour [Unknown]
  - Hallucination [Unknown]
  - Confusional state [Unknown]
  - Condition aggravated [Unknown]
  - Loss of consciousness [Unknown]
  - Dysstasia [Unknown]
  - Dementia Alzheimer^s type [Unknown]
  - Clonus [Unknown]
  - Acute psychosis [Unknown]
  - Psychomotor hyperactivity [Unknown]
  - Tonic convulsion [Unknown]
  - Anxiety [Unknown]
  - Partial seizures [Unknown]
  - Anxiety [Unknown]
